FAERS Safety Report 21906657 (Version 1)
Quarter: 2023Q1

REPORT INFORMATION
  Report Type: Spontaneous
  Country: CN (occurrence: CN)
  Receive Date: 20230125
  Receipt Date: 20230125
  Transmission Date: 20230417
  Serious: Yes (Other)
  Sender: FDA-Public Use
  Company Number: None

PATIENT
  Age: 5 Decade
  Sex: Female

DRUGS (7)
  1. MYCOPHENOLATE MOFETIL [Suspect]
     Active Substance: MYCOPHENOLATE MOFETIL
     Indication: Immunosuppressant drug therapy
     Dosage: 0.5 MILLIGRAM, BID (EVERY 12 HOUR)
     Route: 065
  2. SIROLIMUS [Suspect]
     Active Substance: SIROLIMUS
     Indication: Immunosuppressant drug therapy
     Dosage: 1.5 MILLIGRAM, QD (EVERY 1 DAY)
     Route: 065
  3. TACROLIMUS [Suspect]
     Active Substance: TACROLIMUS
     Indication: Immunosuppressant drug therapy
     Dosage: 2 MILLIGRAM, BID (EVERY 12 HOUR)
     Route: 065
  4. CYCLOSPORINE [Suspect]
     Active Substance: CYCLOSPORINE
     Indication: Immunosuppressant drug therapy
     Dosage: 75 MILLIGRAM, BID (EVERY 12 HOUR)
     Route: 065
  5. ENTECAVIR [Suspect]
     Active Substance: ENTECAVIR
     Indication: Immunosuppressant drug therapy
     Dosage: UNK
     Route: 065
  6. ENTECAVIR [Suspect]
     Active Substance: ENTECAVIR
     Dosage: 0.5 MILLIGRAM, QD (EVERY 1 DAY)
     Route: 065
  7. LENVATINIB [Suspect]
     Active Substance: LENVATINIB
     Indication: Immunosuppressant drug therapy
     Dosage: 8 MILLIGRAM  (EVERY 1 DAY)
     Route: 065

REACTIONS (2)
  - Immune-mediated encephalitis [Unknown]
  - Cytopenia [Unknown]
